FAERS Safety Report 18336818 (Version 2)
Quarter: 2020Q4

REPORT INFORMATION
  Report Type: Spontaneous
  Country: CA (occurrence: CA)
  Receive Date: 20201001
  Receipt Date: 20201105
  Transmission Date: 20210113
  Serious: Yes (Hospitalization, Other)
  Sender: FDA-Public Use
  Company Number: CA-009507513-1902CAN006433

PATIENT
  Age: 44 Year
  Sex: Male

DRUGS (18)
  1. ISENTRESS [Suspect]
     Active Substance: RALTEGRAVIR POTASSIUM
     Indication: HIV INFECTION
     Dosage: 400.0 MILLIGRAM, 2 EVERY 1 DAY (BID)
     Route: 048
  2. SUSTIVA [Suspect]
     Active Substance: EFAVIRENZ
     Indication: HIV INFECTION
     Dosage: UNK/DOSAGE FORM NOT SPECIFIED
     Route: 065
  3. ISENTRESS [Suspect]
     Active Substance: RALTEGRAVIR POTASSIUM
     Dosage: 400.0 MILLIGRAM, 2 EVERY 1 DAY (BID)
     Route: 065
  4. CITALOPRAM [Suspect]
     Active Substance: CITALOPRAM HYDROBROMIDE
     Indication: PSYCHOTIC DISORDER
     Dosage: UNK
     Route: 065
  5. TENOFOVIR [Concomitant]
     Active Substance: TENOFOVIR
     Indication: PRODUCT USED FOR UNKNOWN INDICATION
     Dosage: UNK
     Route: 048
  6. EMTRIVA [Concomitant]
     Active Substance: EMTRICITABINE
     Indication: PRODUCT USED FOR UNKNOWN INDICATION
  7. ATAZANAVIR. [Suspect]
     Active Substance: ATAZANAVIR
     Indication: HIV INFECTION
     Dosage: UNK
     Route: 065
  8. BUPROPION. [Suspect]
     Active Substance: BUPROPION
     Indication: DEPRESSION
     Dosage: UNK
     Route: 065
  9. RISPERIDONE. [Suspect]
     Active Substance: RISPERIDONE
     Dosage: DOSAGE FORM NOT SPECIFIED
     Route: 065
  10. EMTRIVA [Concomitant]
     Active Substance: EMTRICITABINE
     Indication: HIV INFECTION
     Dosage: UNK
     Route: 065
  11. CLONAZEPAM. [Suspect]
     Active Substance: CLONAZEPAM
     Indication: DEPRESSION
     Dosage: UNK
     Route: 065
  12. RISPERIDONE. [Suspect]
     Active Substance: RISPERIDONE
     Indication: DEPRESSION
     Dosage: UNK
     Route: 065
  13. CLONAZEPAM. [Suspect]
     Active Substance: CLONAZEPAM
     Indication: PRODUCT USED FOR UNKNOWN INDICATION
     Dosage: UNK
     Route: 048
  14. QUETIAPINE FUMARATE. [Suspect]
     Active Substance: QUETIAPINE FUMARATE
     Indication: DEPRESSION
     Dosage: UNK
     Route: 065
  15. RITONAVIR. [Suspect]
     Active Substance: RITONAVIR
     Indication: HIV INFECTION
     Dosage: UNK
     Route: 065
  16. RITONAVIR. [Suspect]
     Active Substance: RITONAVIR
     Dosage: DOSAGE FORM NOT SPECIFIED
     Route: 065
  17. T-20 [Suspect]
     Active Substance: ENFUVIRTIDE
     Indication: PRODUCT USED FOR UNKNOWN INDICATION
     Dosage: DOSAGE FORM NOT SPECIFIED
     Route: 065
  18. TENOFOVIR [Concomitant]
     Active Substance: TENOFOVIR
     Indication: HIV INFECTION
     Dosage: UNK
     Route: 048

REACTIONS (11)
  - Depression [Unknown]
  - Suicidal ideation [Unknown]
  - Drug interaction [Unknown]
  - Psychiatric decompensation [Unknown]
  - Psychotic disorder [Unknown]
  - Depression suicidal [Unknown]
  - Paranoia [Unknown]
  - Depressive symptom [Unknown]
  - Psychomotor skills impaired [Unknown]
  - Anxiety [Recovered/Resolved]
  - Tearfulness [Unknown]
